FAERS Safety Report 23793785 (Version 1)
Quarter: 2024Q2

REPORT INFORMATION
  Report Type: Report from Study
  Country: CA (occurrence: None)
  Receive Date: 20240429
  Receipt Date: 20240429
  Transmission Date: 20240716
  Serious: Yes (Other)
  Sender: FDA-Public Use
  Company Number: CA-PFIZER INC-202400093929

PATIENT
  Age: 73 Year
  Sex: Female

DRUGS (14)
  1. METHOTREXATE [Suspect]
     Active Substance: METHOTREXATE
     Indication: Product used for unknown indication
  2. KEVZARA [Suspect]
     Active Substance: SARILUMAB
     Indication: Rheumatoid arthritis
     Dosage: CYCLICAL
  3. DILTIAZEM [Concomitant]
     Active Substance: DILTIAZEM
  4. DILTIAZEM [Concomitant]
     Active Substance: DILTIAZEM
  5. DILTIAZEM [Concomitant]
     Active Substance: DILTIAZEM
  6. ETANERCEPT [Concomitant]
     Active Substance: ETANERCEPT
  7. EZETIMIBE [Concomitant]
     Active Substance: EZETIMIBE
  8. EZETIMIBE [Concomitant]
     Active Substance: EZETIMIBE
  9. EZETIMIBE [Concomitant]
     Active Substance: EZETIMIBE
  10. ROSUVASTATIN [Concomitant]
     Active Substance: ROSUVASTATIN
  11. ROSUVASTATIN [Concomitant]
     Active Substance: ROSUVASTATIN
  12. ROSUVASTATIN [Concomitant]
     Active Substance: ROSUVASTATIN
  13. VITAMINS [Concomitant]
     Active Substance: VITAMINS
  14. VITAMINS [Concomitant]
     Active Substance: VITAMINS

REACTIONS (7)
  - Contusion [Not Recovered/Not Resolved]
  - Diverticulitis [Not Recovered/Not Resolved]
  - Infection [Not Recovered/Not Resolved]
  - Petechiae [Not Recovered/Not Resolved]
  - Pyrexia [Not Recovered/Not Resolved]
  - Vasculitis [Not Recovered/Not Resolved]
  - Wound [Not Recovered/Not Resolved]
